FAERS Safety Report 19878636 (Version 1)
Quarter: 2021Q3

REPORT INFORMATION
  Report Type: Spontaneous
  Country: DE (occurrence: DE)
  Receive Date: 20210923
  Receipt Date: 20210923
  Transmission Date: 20211014
  Serious: Yes (Death, Other)
  Sender: FDA-Public Use
  Company Number: DE-GILEAD-2021-0549431

PATIENT
  Age: 63 Year
  Sex: Male

DRUGS (4)
  1. TECARTUS [Suspect]
     Active Substance: BREXUCABTAGENE AUTOLEUCEL
     Indication: PRODUCT USED FOR UNKNOWN INDICATION
     Dosage: UNK
     Route: 042
     Dates: start: 20210913, end: 20210913
  2. METHYLPREDNISOLONE. [Concomitant]
     Active Substance: METHYLPREDNISOLONE
     Dosage: 1 G
  3. ANTODINE [FAMOTIDINE] [Concomitant]
     Active Substance: FAMOTIDINE
     Dosage: 10 MG
  4. TECARTUS [Suspect]
     Active Substance: BREXUCABTAGENE AUTOLEUCEL
     Dosage: UNK
     Route: 042

REACTIONS (3)
  - Atypical pneumonia [Fatal]
  - Cytokine release syndrome [Fatal]
  - Multiple organ dysfunction syndrome [Fatal]

NARRATIVE: CASE EVENT DATE: 20210913
